FAERS Safety Report 15744831 (Version 1)
Quarter: 2018Q4

REPORT INFORMATION
  Report Type: Spontaneous
  Country: US (occurrence: US)
  Receive Date: 20181220
  Receipt Date: 20181220
  Transmission Date: 20190205
  Serious: Yes (Life-Threatening, Hospitalization, Disabling, Other)
  Sender: FDA-Public Use
  Company Number: None

PATIENT
  Age: 41 Year
  Sex: Male
  Weight: 82.35 kg

DRUGS (2)
  1. MULTIHANCE [Suspect]
     Active Substance: GADOBENATE DIMEGLUMINE
     Indication: LIMB INJURY
     Route: 030
     Dates: start: 20180305, end: 20180305
  2. METFORMIN [Concomitant]
     Active Substance: METFORMIN HYDROCHLORIDE

REACTIONS (18)
  - Arthralgia [None]
  - Skin burning sensation [None]
  - Alopecia [None]
  - Bone pain [None]
  - Drug ineffective [None]
  - Urticaria [None]
  - Wound [None]
  - Muscle spasms [None]
  - Photophobia [None]
  - Myalgia [None]
  - Eye irritation [None]
  - Rash [None]
  - Ocular hyperaemia [None]
  - Feeling abnormal [None]
  - Headache [None]
  - Impaired healing [None]
  - Dysphagia [None]
  - Burning sensation [None]

NARRATIVE: CASE EVENT DATE: 20180305
